FAERS Safety Report 15903055 (Version 1)
Quarter: 2019Q1

REPORT INFORMATION
  Report Type: Spontaneous
  Country: DE (occurrence: DE)
  Receive Date: 20190202
  Receipt Date: 20190202
  Transmission Date: 20190417
  Serious: Yes (Life-Threatening, Hospitalization, Other)
  Sender: FDA-Public Use
  Company Number: DE-AUROBINDO-AUR-APL-2019-004687

PATIENT
  Age: 75 Year
  Sex: Male
  Weight: 63.8 kg

DRUGS (13)
  1. SPIRONOLACTON [Concomitant]
     Active Substance: SPIRONOLACTONE
     Indication: PRODUCT USED FOR UNKNOWN INDICATION
     Dosage: 100 MILLIGRAM, DAILY
     Route: 065
     Dates: start: 20130101
  2. PANTOPRAZOL [Concomitant]
     Active Substance: PANTOPRAZOLE SODIUM
     Indication: PRODUCT USED FOR UNKNOWN INDICATION
     Dosage: 40 MILLIGRAM, DAILY
     Route: 065
     Dates: start: 20130131
  3. BISOPROLOL [Concomitant]
     Active Substance: BISOPROLOL
     Indication: PRODUCT USED FOR UNKNOWN INDICATION
     Dosage: 2 UNK, DAILY
     Route: 065
     Dates: start: 20050101
  4. DENOSUMAB [Concomitant]
     Active Substance: DENOSUMAB
     Indication: PRODUCT USED FOR UNKNOWN INDICATION
     Dosage: 1 UNK EVERY 4 WEEKS
     Route: 058
     Dates: start: 201406
  5. OXALIPLATIN. [Suspect]
     Active Substance: OXALIPLATIN
     Indication: COLORECTAL CANCER
     Dosage: DOSAGES BETWEEN 115 MG AND 155 MG
     Route: 065
     Dates: start: 20130204
  6. 5-FLUOROURACIL [Suspect]
     Active Substance: FLUOROURACIL
     Dosage: DOSAGES BETWEEN 2900 MG AND 4350 MG
     Route: 040
     Dates: start: 20130204
  7. BEVACIZUMAB. [Suspect]
     Active Substance: BEVACIZUMAB
     Indication: COLON CANCER
     Dosage: 325 MILLIGRAM
     Route: 042
     Dates: start: 20130218
  8. BEVACIZUMAB. [Suspect]
     Active Substance: BEVACIZUMAB
     Indication: RECTAL CANCER
     Dosage: 325 MILLIGRAM
     Route: 042
     Dates: start: 20130724
  9. BEVACIZUMAB. [Suspect]
     Active Substance: BEVACIZUMAB
     Dosage: 325 MILLIGRAM
     Route: 042
     Dates: start: 20131023
  10. FOLINIC ACID [Suspect]
     Active Substance: LEUCOVORIN
     Indication: COLORECTAL CANCER
     Dosage: DOSAGES BETWEEN 470 MG AND 730 MG
     Route: 065
     Dates: start: 20130204
  11. CAPECITABINE. [Suspect]
     Active Substance: CAPECITABINE
     Indication: COLORECTAL CANCER
     Dosage: UNK
     Route: 065
     Dates: start: 201312
  12. MARCUMAR [Concomitant]
     Active Substance: PHENPROCOUMON
     Indication: PRODUCT USED FOR UNKNOWN INDICATION
     Dosage: ACCORDING TO PLAN
     Route: 065
     Dates: start: 20100101
  13. 5-FLUOROURACIL [Suspect]
     Active Substance: FLUOROURACIL
     Indication: COLORECTAL CANCER
     Dosage: DOSAGES BETWEEN 475 MG AND 725 MG
     Route: 040
     Dates: start: 20130204

REACTIONS (11)
  - Jugular vein thrombosis [Recovered/Resolved]
  - Diarrhoea [Unknown]
  - Constipation [Unknown]
  - Neutropenia [Unknown]
  - Atrial fibrillation [Unknown]
  - Benign prostatic hyperplasia [Unknown]
  - Thrombocytopenia [Unknown]
  - Body temperature increased [Unknown]
  - Fatigue [Unknown]
  - Palmar-plantar erythrodysaesthesia syndrome [Unknown]
  - Peripheral sensory neuropathy [Unknown]

NARRATIVE: CASE EVENT DATE: 20130820
